FAERS Safety Report 5171414-X (Version None)
Quarter: 2006Q4

REPORT INFORMATION
  Report Type: 
  Country: None (occurrence: None)
  Receive Date: 20061213
  Receipt Date: 20060329
  Transmission Date: 20070319
  Serious: Yes (Life-Threatening, Hospitalization, Other)
  Sender: FDA-Public Use
  Company Number: US-AMGEN-US174783

PATIENT
  Sex: Male
  Weight: 80 kg

DRUGS (9)
  1. ENBREL [Suspect]
     Indication: ANKYLOSING SPONDYLITIS
     Route: 058
     Dates: start: 20030701, end: 20050915
  2. LOVASTATIN [Concomitant]
     Dates: start: 20031203
  3. CYCLOBENZAPRINE HCL [Concomitant]
     Dates: start: 20040114
  4. NSAID'S [Concomitant]
  5. BUSPIRONE HCL [Concomitant]
  6. OMEPRAZOLE [Concomitant]
     Dates: start: 20031212
  7. METHOCARBAMOL [Concomitant]
  8. ALENDRONATE SODIUM [Concomitant]
     Dates: start: 20040628
  9. HYDROCODONE BITARTRATE AND ACETAMINOPHEN [Concomitant]
     Dates: start: 20040603, end: 20051216

REACTIONS (2)
  - BLAST CRISIS IN MYELOGENOUS LEUKAEMIA [None]
  - CHRONIC MYELOID LEUKAEMIA [None]
